FAERS Safety Report 21340181 (Version 1)
Quarter: 2022Q3

REPORT INFORMATION
  Report Type: Spontaneous
  Country: JP (occurrence: JP)
  Receive Date: 20220916
  Receipt Date: 20220916
  Transmission Date: 20221027
  Serious: Yes (Other)
  Sender: FDA-Public Use
  Company Number: JP-UCBSA-2022054509

PATIENT
  Sex: Female

DRUGS (6)
  1. LEVETIRACETAM [Suspect]
     Active Substance: LEVETIRACETAM
     Indication: Lennox-Gastaut syndrome
     Dosage: UNK
  2. LEVETIRACETAM [Suspect]
     Active Substance: LEVETIRACETAM
     Indication: Off label use
  3. LAMOTRIGINE [Suspect]
     Active Substance: LAMOTRIGINE
     Indication: Lennox-Gastaut syndrome
     Dosage: UNK
  4. NITRAZEPAM [Suspect]
     Active Substance: NITRAZEPAM
     Indication: Lennox-Gastaut syndrome
     Dosage: UNK
  5. RUFINAMIDE [Suspect]
     Active Substance: RUFINAMIDE
     Indication: Lennox-Gastaut syndrome
     Dosage: UNK
  6. VITAMIN B6 [Suspect]
     Active Substance: PYRIDOXINE HYDROCHLORIDE
     Indication: Lennox-Gastaut syndrome
     Dosage: UNK
     Route: 048

REACTIONS (3)
  - Tonic convulsion [Unknown]
  - Multiple-drug resistance [Unknown]
  - Off label use [Unknown]
